FAERS Safety Report 6156053-6 (Version None)
Quarter: 2009Q2

REPORT INFORMATION
  Report Type: 
  Country: None (occurrence: None)
  Receive Date: 20090415
  Receipt Date: 20090407
  Transmission Date: 20091009
  Serious: Yes (Hospitalization)
  Sender: FDA-Public Use
  Company Number: US-ELI_LILLY_AND_COMPANY-US200904001548

PATIENT
  Sex: Female

DRUGS (4)
  1. FORTEO [Suspect]
     Dates: start: 20080301
  2. LYRICA [Concomitant]
     Indication: FIBROMYALGIA
  3. ULTRAM [Concomitant]
  4. IBUPROFEN [Concomitant]
     Dosage: UNK, AS NEEDED

REACTIONS (3)
  - ARTHROSCOPY [None]
  - ELBOW OPERATION [None]
  - KNEE ARTHROPLASTY [None]
